FAERS Safety Report 24990797 (Version 1)
Quarter: 2025Q1

REPORT INFORMATION
  Report Type: Report from Study
  Country: US (occurrence: US)
  Receive Date: 20250220
  Receipt Date: 20250220
  Transmission Date: 20250409
  Serious: Yes (Hospitalization, Other)
  Sender: GILEAD
  Company Number: US-GILEAD-2025-0704051

PATIENT
  Age: 63 Year
  Sex: Male

DRUGS (15)
  1. AZTREONAM LYSINE [Suspect]
     Active Substance: AZTREONAM LYSINE
     Indication: Bronchiectasis
     Dosage: INHALE 1ML 75MG VIA NEBULIZER THREE TIMES DAILY FOR 28 DAYS ON THEN 28 DAYS OFF
     Route: 055
     Dates: start: 20240330
  2. ALBUTOL [SALBUTAMOL SULFATE] [Concomitant]
  3. HUMALOG [Concomitant]
     Active Substance: INSULIN LISPRO
  4. KEPPRA [Concomitant]
     Active Substance: LEVETIRACETAM
  5. LANTUS [Concomitant]
     Active Substance: INSULIN GLARGINE
  6. LEVOTHYROXINE [Concomitant]
     Active Substance: LEVOTHYROXINE
  7. MELATONIN [Concomitant]
     Active Substance: MELATONIN
  8. METFORMIN [Concomitant]
     Active Substance: METFORMIN HYDROCHLORIDE
  9. PREDNISONE [Concomitant]
     Active Substance: PREDNISONE
  10. TOBRAMYCIN [Concomitant]
     Active Substance: TOBRAMYCIN
  11. TRELEGY ELLIPTA [Concomitant]
     Active Substance: FLUTICASONE FUROATE\UMECLIDINIUM BROMIDE\VILANTEROL TRIFENATATE
  12. VORICONAZOLE [Concomitant]
     Active Substance: VORICONAZOLE
  13. XOLAIR [Concomitant]
     Active Substance: OMALIZUMAB
  14. XYZAL [Concomitant]
     Active Substance: LEVOCETIRIZINE DIHYDROCHLORIDE
  15. DUPIXENT [Concomitant]
     Active Substance: DUPILUMAB

REACTIONS (4)
  - Oxygen saturation decreased [Unknown]
  - Lung abscess [Unknown]
  - Impaired quality of life [Unknown]
  - Product use in unapproved indication [Not Recovered/Not Resolved]
